FAERS Safety Report 22196459 (Version 1)
Quarter: 2023Q2

REPORT INFORMATION
  Report Type: Spontaneous
  Country: US (occurrence: None)
  Receive Date: 20230410
  Receipt Date: 20230410
  Transmission Date: 20230721
  Serious: Yes (Death)
  Sender: FDA-Public Use
  Company Number: None

PATIENT
  Age: 72 Year
  Sex: Male

DRUGS (1)
  1. BIKTARVY [Suspect]
     Active Substance: BICTEGRAVIR SODIUM\EMTRICITABINE\TENOFOVIR ALAFENAMIDE FUMARATE
     Dosage: 50/200/25MG QD PO? ??TREATMENT DATES: START- 12/13/2023?                                    STOP-07/
     Route: 048
     Dates: end: 20230407

REACTIONS (1)
  - Death [None]

NARRATIVE: CASE EVENT DATE: 20230407
